FAERS Safety Report 4525443-7 (Version None)
Quarter: 2004Q4

REPORT INFORMATION
  Report Type: 
  Country: None (occurrence: None)
  Receive Date: 20041123
  Receipt Date: 20031007
  Transmission Date: 20050328
  Serious: Yes (Other)
  Sender: FDA-Public Use
  Company Number: 001-0981-M0201461

PATIENT
  Age: 54 Year
  Sex: Female
  Weight: 104.3273 kg

DRUGS (7)
  1. LIPITOR [Suspect]
     Indication: BLOOD CHOLESTEROL INCREASED
     Dosage: 10 MG (DAILY), ORAL
     Route: 048
     Dates: start: 20011221, end: 20020106
  2. CONJUGATED ESTROGENS [Concomitant]
  3. PAROXETINE HCL [Concomitant]
  4. ALL OTHER THERAPEUTIC PRODUCTS (ALL OTHER THERAPEUTIC PRODUCTS) [Concomitant]
  5. ROFECOXIB [Concomitant]
  6. CETIRIZINE HCL [Concomitant]
  7. TIZANIDINE (TIZANIDINE) [Concomitant]

REACTIONS (19)
  - ABNORMAL FAECES [None]
  - ASTHENIA [None]
  - BACK PAIN [None]
  - CONSTIPATION [None]
  - COUGH [None]
  - DRY SKIN [None]
  - DYSPNOEA [None]
  - EYE DISORDER [None]
  - HAIR COLOUR CHANGES [None]
  - HYPERTENSION [None]
  - HYPOTRICHOSIS [None]
  - LABORATORY TEST ABNORMAL [None]
  - LIPIDS INCREASED [None]
  - MENISCUS LESION [None]
  - MYALGIA [None]
  - NIGHTMARE [None]
  - PAIN IN EXTREMITY [None]
  - PRURITUS [None]
  - TREMOR [None]
